FAERS Safety Report 10241704 (Version 1)
Quarter: 2014Q2

REPORT INFORMATION
  Report Type: Spontaneous
  Country: FR (occurrence: FR)
  Receive Date: 20140617
  Receipt Date: 20140617
  Transmission Date: 20141212
  Serious: Yes (Death)
  Sender: FDA-Public Use
  Company Number: FR-SA-2014SA074248

PATIENT
  Age: 78 Year
  Sex: Female

DRUGS (8)
  1. LOVENOX [Suspect]
     Indication: PHLEBITIS
     Route: 058
     Dates: start: 2011, end: 20140318
  2. PLAVIX [Suspect]
     Indication: PRODUCT USED FOR UNKNOWN INDICATION
     Route: 048
     Dates: end: 20140318
  3. PRETERAX [Concomitant]
  4. MEDIATENSYL [Concomitant]
  5. LOXEN [Concomitant]
  6. OMEPRAZOLE [Concomitant]
  7. SERESTA [Concomitant]
  8. TEGRETOL [Concomitant]

REACTIONS (3)
  - Coma [Fatal]
  - Intracranial pressure increased [Fatal]
  - Cerebral haematoma [Fatal]
